FAERS Safety Report 12840923 (Version 1)
Quarter: 2016Q4

REPORT INFORMATION
  Report Type: Spontaneous
  Country: US (occurrence: US)
  Receive Date: 20161012
  Receipt Date: 20161012
  Transmission Date: 20170207
  Serious: No
  Sender: FDA-Public Use
  Company Number: US-ALLERGAN-1648485

PATIENT
  Sex: Male

DRUGS (1)
  1. NITROGLYCERIN UNK [Suspect]
     Active Substance: NITROGLYCERIN
     Indication: ANAL FISSURE
     Dosage: UNK UNK, UNKNOWN
     Route: 061

REACTIONS (1)
  - Headache [Unknown]
